FAERS Safety Report 11119857 (Version 2)
Quarter: 2015Q2

REPORT INFORMATION
  Report Type: Spontaneous
  Country: US (occurrence: US)
  Receive Date: 20150518
  Receipt Date: 20150617
  Transmission Date: 20150821
  Serious: Yes (Death)
  Sender: FDA-Public Use
  Company Number: US-CELGENE-USA-2015052256

PATIENT
  Age: 52 Year
  Sex: Male

DRUGS (2)
  1. ABRAXANE [Suspect]
     Active Substance: PACLITAXEL
     Indication: LUNG NEOPLASM MALIGNANT
     Route: 050
     Dates: start: 20150327, end: 20150327
  2. CARBOPLATIN. [Concomitant]
     Active Substance: CARBOPLATIN
     Indication: LUNG CANCER METASTATIC
     Route: 050
     Dates: start: 20150327, end: 20150327

REACTIONS (1)
  - Lung cancer metastatic [Fatal]

NARRATIVE: CASE EVENT DATE: 20150418
